FAERS Safety Report 4832509-0 (Version None)
Quarter: 2005Q4

REPORT INFORMATION
  Report Type: 
  Country: None (occurrence: None)
  Receive Date: 20051121
  Receipt Date: 20051114
  Transmission Date: 20060501
  Serious: Yes (Other)
  Sender: FDA-Public Use
  Company Number: US-JNJFOC-20051103934

PATIENT
  Age: 32 Year
  Sex: Female

DRUGS (1)
  1. ORTHO EVRA [Suspect]
     Indication: DRUG USE FOR UNKNOWN INDICATION
     Route: 062

REACTIONS (8)
  - AGGRESSION [None]
  - AMNESIA [None]
  - DYSGEUSIA [None]
  - HUNGER [None]
  - LOCAL SWELLING [None]
  - OEDEMA MOUTH [None]
  - PSYCHIATRIC SYMPTOM [None]
  - SWELLING FACE [None]
